FAERS Safety Report 5739767-9 (Version None)
Quarter: 2008Q2

REPORT INFORMATION
  Report Type: 
  Country: None (occurrence: None)
  Receive Date: 20080512
  Receipt Date: 20080512
  Transmission Date: 20081010
  Serious: Yes (Other)
  Sender: FDA-Public Use
  Company Number: None

PATIENT
  Age: 57 Year
  Sex: Female
  Weight: 129.2752 kg

DRUGS (1)
  1. LUNESTA [Suspect]
     Indication: INSOMNIA
     Dosage: ONCE AT NIGHT PO
     Route: 048
     Dates: start: 20050617, end: 20050620

REACTIONS (3)
  - AGGRESSION [None]
  - CRYING [None]
  - SUICIDAL IDEATION [None]
